FAERS Safety Report 6745667-8 (Version None)
Quarter: 2010Q2

REPORT INFORMATION
  Report Type: 
  Country: None (occurrence: None)
  Receive Date: 20100526
  Receipt Date: 20100517
  Transmission Date: 20101027
  Serious: Yes (Other)
  Sender: FDA-Public Use
  Company Number: 2010-00007

PATIENT
  Age: 50 Year
  Sex: Female
  Weight: 77.1115 kg

DRUGS (1)
  1. AVEENO POS AGELESS DAILY MOIST SPF30 [Suspect]
     Indication: PROPHYLAXIS AGAINST SOLAR RADIATION
     Dosage: QUARTER SIZE, ONCE, TOPICAL
     Route: 061
     Dates: start: 20100515

REACTIONS (7)
  - DYSPNOEA [None]
  - ERYTHEMA [None]
  - EYE ROLLING [None]
  - LOSS OF CONSCIOUSNESS [None]
  - PRURITUS [None]
  - RASH [None]
  - SWELLING FACE [None]
